FAERS Safety Report 11995018 (Version 1)
Quarter: 2016Q1

REPORT INFORMATION
  Report Type: Spontaneous
  Country: US (occurrence: US)
  Receive Date: 20160203
  Receipt Date: 20160203
  Transmission Date: 20160526
  Serious: No
  Sender: FDA-Public Use
  Company Number: US-UCBSA-2015002868

PATIENT
  Age: 48 Year
  Sex: Male

DRUGS (2)
  1. KEPPRA XR [Suspect]
     Active Substance: LEVETIRACETAM
     Indication: SEIZURE
     Dosage: 500 MG/2 DAY
     Dates: start: 2013, end: 201411
  2. KEPPRA XR [Suspect]
     Active Substance: LEVETIRACETAM
     Dosage: 4 PIILS PER DAY, 2000 MG
     Dates: start: 201411, end: 201509

REACTIONS (2)
  - Malaise [Not Recovered/Not Resolved]
  - Seizure [Recovered/Resolved]

NARRATIVE: CASE EVENT DATE: 201411
